FAERS Safety Report 19738367 (Version 4)
Quarter: 2023Q1

REPORT INFORMATION
  Report Type: Spontaneous
  Country: US (occurrence: US)
  Receive Date: 20210823
  Receipt Date: 20230310
  Transmission Date: 20230417
  Serious: Yes (Death, Hospitalization, Other)
  Sender: FDA-Public Use
  Company Number: US-PFIZER INC-202101075904

PATIENT
  Age: 55 Year
  Sex: Female

DRUGS (3)
  1. XELJANZ XR [Suspect]
     Active Substance: TOFACITINIB CITRATE
     Dosage: 11 MG
     Dates: start: 20190627
  2. XELJANZ XR [Suspect]
     Active Substance: TOFACITINIB CITRATE
     Dosage: 11 MG
     Dates: start: 20200117
  3. XELJANZ XR [Suspect]
     Active Substance: TOFACITINIB CITRATE
     Dosage: 11 MG, 1X/DAY
     Route: 048

REACTIONS (22)
  - Sepsis [Fatal]
  - Cellulitis [Fatal]
  - Head injury [Unknown]
  - Mental status changes [Unknown]
  - Urinary retention [Unknown]
  - Encephalopathy [Unknown]
  - Chronic kidney disease [Unknown]
  - Cardiac failure congestive [Unknown]
  - Urinary tract infection [Unknown]
  - Pneumonia [Unknown]
  - Troponin increased [Unknown]
  - Hypertensive urgency [Unknown]
  - Tachycardia [Unknown]
  - Hypokalaemia [Unknown]
  - Dyspnoea [Unknown]
  - Palpitations [Unknown]
  - Acute kidney injury [Unknown]
  - Pyelonephritis [Unknown]
  - Fall [Unknown]
  - Dizziness [Unknown]
  - Depression [Unknown]
  - Dehydration [Unknown]

NARRATIVE: CASE EVENT DATE: 20210401
